FAERS Safety Report 4434978-7 (Version None)
Quarter: 2004Q3

REPORT INFORMATION
  Report Type: 
  Country: None (occurrence: None)
  Receive Date: 20040726
  Receipt Date: 20040518
  Transmission Date: 20050211
  Serious: No
  Sender: FDA-Public Use
  Company Number: USA040567966

PATIENT
  Age: 70 Year
  Sex: Female

DRUGS (5)
  1. FORTEO [Suspect]
     Indication: OSTEOPOROSIS
     Dates: start: 20040405
  2. LIPITOR [Concomitant]
  3. THYROID TAB [Concomitant]
  4. ASPIRIN [Concomitant]
  5. VITAMIN E [Concomitant]

REACTIONS (3)
  - BACK PAIN [None]
  - INJECTION SITE HAEMORRHAGE [None]
  - MUSCLE CRAMP [None]
